FAERS Safety Report 6243355-8 (Version None)
Quarter: 2009Q2

REPORT INFORMATION
  Report Type: 
  Country: None (occurrence: None)
  Receive Date: 20090622
  Receipt Date: 20090609
  Transmission Date: 20091009
  Serious: Yes (Hospitalization)
  Sender: FDA-Public Use
  Company Number: 2009-02329

PATIENT
  Age: 69 Year
  Sex: Male

DRUGS (25)
  1. VELCADE [Suspect]
     Indication: MULTIPLE MYELOMA
     Dosage: 2.6 MG, INTRAVENOUS
     Route: 042
     Dates: start: 20080325, end: 20080516
  2. ALLOPURINOL [Concomitant]
  3. AMBISOME [Concomitant]
  4. CASPOFUNGIN (CASPOFUNGIN) [Concomitant]
  5. CEFTAZIDIME PENTAHYDRATE [Concomitant]
  6. CILASTATIN (CILASTATIN) [Concomitant]
  7. CO-AMOXICLAV (CLAVULANATE POTASSIUM, AMOXICILLIN TRIHYDRATE) [Concomitant]
  8. CYCLOPHOSPHAMIDE [Concomitant]
  9. DEXAMETHASONE [Concomitant]
  10. FILGRASTIM [Concomitant]
  11. FUROSEMIDE [Concomitant]
  12. GENTAMICIN [Concomitant]
  13. IMIPENEM (IMIPENEM) [Concomitant]
  14. MEROPENEM (MEROPENEM) [Concomitant]
  15. METHYLPREDNISOLONE [Concomitant]
  16. METOCLOPRAMIDE [Concomitant]
  17. METRONIDAZOLE (METRONIDAZOLE) [Concomitant]
  18. NIFEDIPINE [Concomitant]
  19. OMEPRAZOLE [Concomitant]
  20. PAMIDRONATE DISODIUM [Concomitant]
  21. RAMIPRIL [Concomitant]
  22. SENNA (SENNA) [Concomitant]
  23. PIPERACILLIN SODIUM AND TAZOBACTAM SODIUM [Concomitant]
  24. THALIDOMIDE [Concomitant]
  25. VORICONAZOLE (VORICONAZOLE) [Concomitant]

REACTIONS (11)
  - ASTHENIA [None]
  - BALANCE DISORDER [None]
  - CEREBRAL ATROPHY [None]
  - CONSTIPATION [None]
  - LOSS OF PROPRIOCEPTION [None]
  - NECK PAIN [None]
  - NEUROPATHY PERIPHERAL [None]
  - ORTHOSTATIC HYPOTENSION [None]
  - PAIN [None]
  - PALLANAESTHESIA [None]
  - PARAESTHESIA [None]
